FAERS Safety Report 20430585 (Version 1)
Quarter: 2022Q1

REPORT INFORMATION
  Report Type: Report from Study
  Country: US (occurrence: US)
  Receive Date: 20220204
  Receipt Date: 20220204
  Transmission Date: 20220423
  Serious: Yes (Death, Life-Threatening, Hospitalization)
  Sender: FDA-Public Use
  Company Number: 2020474072

PATIENT

DRUGS (6)
  1. PEGASPARGASE [Suspect]
     Active Substance: PEGASPARGASE
     Indication: B precursor type acute leukaemia
     Dosage: 3750 IU
     Route: 042
     Dates: start: 20200428, end: 20201021
  2. METHOTREXATE SODIUM [Suspect]
     Active Substance: METHOTREXATE SODIUM
     Indication: B precursor type acute leukaemia
     Dosage: 537 MG, TOTAL DOSE
     Route: 042
     Dates: start: 20201020, end: 20201103
  3. METHOTREXATE SODIUM [Suspect]
     Active Substance: METHOTREXATE SODIUM
     Dosage: UNK
     Route: 037
     Dates: start: 20201020
  4. INOTUZUMAB OZOGAMICIN [Suspect]
     Active Substance: INOTUZUMAB OZOGAMICIN
     Indication: B precursor type acute leukaemia
     Dosage: 0.5 MG/M2, ON D1, D8 AND D15 OF A 28-DAY CYCLE
     Route: 065
     Dates: start: 20200615, end: 20200727
  5. TN UNSPECIFIED [Concomitant]
     Indication: B precursor type acute leukaemia
     Dosage: UNK
     Route: 042
     Dates: start: 20201103
  6. TN UNSPECIFIED [Concomitant]
     Indication: B precursor type acute leukaemia
     Dosage: UNK
     Route: 042
     Dates: start: 20201103

REACTIONS (18)
  - Blood bilirubin increased [Not Recovered/Not Resolved]
  - Acute kidney injury [Not Recovered/Not Resolved]
  - Hepatic failure [Fatal]
  - Renal failure [Fatal]
  - Febrile neutropenia [Recovered/Resolved]
  - Septic shock [Unknown]
  - Immunosuppression [Unknown]
  - Pancytopenia [Unknown]
  - Coagulopathy [Unknown]
  - Oesophageal varices haemorrhage [Unknown]
  - Gastrointestinal haemorrhage [Unknown]
  - Epistaxis [Unknown]
  - Insomnia [Unknown]
  - Bacteraemia [Unknown]
  - Peritonitis [Unknown]
  - Multiple organ dysfunction syndrome [Unknown]
  - Vitamin D deficiency [Unknown]
  - Adrenal insufficiency [Unknown]

NARRATIVE: CASE EVENT DATE: 20201002
